FAERS Safety Report 6441739-6 (Version None)
Quarter: 2009Q4

REPORT INFORMATION
  Report Type: 
  Country: None (occurrence: None)
  Receive Date: 20091116
  Receipt Date: 20091105
  Transmission Date: 20100525
  Serious: Yes (Other)
  Sender: FDA-Public Use
  Company Number: BR-PFIZER INC-2009293757

PATIENT
  Age: 32 Year
  Sex: Male
  Weight: 75 kg

DRUGS (1)
  1. VIBRAMICINA [Suspect]
     Indication: BACTERIAL INFECTION
     Dosage: 100 MG, 2X/DAY
     Route: 048
     Dates: start: 20091020

REACTIONS (2)
  - NAUSEA [None]
  - RENAL COLIC [None]
